FAERS Safety Report 11144422 (Version 1)
Quarter: 2015Q2

REPORT INFORMATION
  Report Type: Spontaneous
  Country: US (occurrence: US)
  Receive Date: 20150526
  Receipt Date: 20150526
  Transmission Date: 20150821
  Serious: No
  Sender: FDA-Public Use
  Company Number: US-PFIZER INC-2015163282

PATIENT
  Sex: Female

DRUGS (9)
  1. CLONIDINE. [Suspect]
     Active Substance: CLONIDINE
     Dosage: UNK
  2. LYRICA [Suspect]
     Active Substance: PREGABALIN
  3. NEURONTIN [Suspect]
     Active Substance: GABAPENTIN
     Dosage: 2400 MG, DAILY
  4. EFFEXOR XR [Suspect]
     Active Substance: VENLAFAXINE HYDROCHLORIDE
     Dosage: UNK
  5. KEPPRA [Suspect]
     Active Substance: LEVETIRACETAM
     Dosage: UNK
  6. KLONOPIN [Suspect]
     Active Substance: CLONAZEPAM
     Dosage: UNK
  7. SEROQUEL [Suspect]
     Active Substance: QUETIAPINE FUMARATE
  8. BUSPAR [Suspect]
     Active Substance: BUSPIRONE HYDROCHLORIDE
  9. REMERON [Suspect]
     Active Substance: MIRTAZAPINE

REACTIONS (16)
  - Fear [Not Recovered/Not Resolved]
  - Pollakiuria [Not Recovered/Not Resolved]
  - Restlessness [Not Recovered/Not Resolved]
  - Bladder pain [Not Recovered/Not Resolved]
  - Arthralgia [Not Recovered/Not Resolved]
  - Pruritus [Not Recovered/Not Resolved]
  - Feeling cold [Not Recovered/Not Resolved]
  - Nasal dryness [Not Recovered/Not Resolved]
  - Tremor [Not Recovered/Not Resolved]
  - Eye irritation [Not Recovered/Not Resolved]
  - Depersonalisation [Not Recovered/Not Resolved]
  - Drug withdrawal syndrome [Not Recovered/Not Resolved]
  - Abdominal pain upper [Not Recovered/Not Resolved]
  - Anxiety [Not Recovered/Not Resolved]
  - Dry eye [Not Recovered/Not Resolved]
  - Dry skin [Not Recovered/Not Resolved]
